FAERS Safety Report 25460167 (Version 1)
Quarter: 2025Q2

REPORT INFORMATION
  Report Type: Spontaneous
  Country: US (occurrence: US)
  Receive Date: 20250620
  Receipt Date: 20250620
  Transmission Date: 20250717
  Serious: Yes (Other)
  Sender: MERCK SHARP & DOHME LLC
  Company Number: US-009507513-2294864

PATIENT
  Age: 64 Year
  Sex: Male

DRUGS (1)
  1. KEYTRUDA [Suspect]
     Active Substance: PEMBROLIZUMAB
     Dosage: 1 INJECTION EVERY 21 DAYS

REACTIONS (2)
  - Central venous catheterisation [Unknown]
  - Therapy interrupted [Recovering/Resolving]

NARRATIVE: CASE EVENT DATE: 20240910
